FAERS Safety Report 8334551-4 (Version None)
Quarter: 2012Q2

REPORT INFORMATION
  Report Type: 
  Country: None (occurrence: None)
  Receive Date: 20120503
  Receipt Date: 20110622
  Transmission Date: 20120825
  Serious: No
  Sender: FDA-Public Use
  Company Number: US-TEVA-2011001658

PATIENT
  Sex: Female
  Weight: 57.204 kg

DRUGS (7)
  1. FENTANYL [Concomitant]
  2. SYNTHROID [Concomitant]
  3. HYDROCODONE [Concomitant]
  4. NORFLEX [Concomitant]
  5. NUVIGIL [Suspect]
     Indication: FATIGUE
     Dosage: 150 MILLIGRAM;
     Route: 048
     Dates: start: 20101201
  6. CELEXA [Concomitant]
  7. ESTRADIOL [Concomitant]

REACTIONS (1)
  - NEURODERMATITIS [None]
